FAERS Safety Report 6032103-2 (Version None)
Quarter: 2009Q1

REPORT INFORMATION
  Report Type: 
  Country: None (occurrence: None)
  Receive Date: 20090107
  Receipt Date: 20081223
  Transmission Date: 20090719
  Serious: Yes (Other)
  Sender: FDA-Public Use
  Company Number: CN-1168197

PATIENT
  Age: 52 Year
  Sex: Female

DRUGS (4)
  1. TOBRADEX [Suspect]
     Dosage: TID   OPHTHALMIC
     Route: 047
     Dates: start: 20081109, end: 20081114
  2. DICLOFENAC SODIUM [Concomitant]
  3. LOMEFLOXACIN (LOMEFLOXACIN) [Concomitant]
  4. DEXAMETHASONE SODIUM PHOSPHATE [Concomitant]

REACTIONS (2)
  - CORNEAL DISORDER [None]
  - CORNEAL PERFORATION [None]
